FAERS Safety Report 14680870 (Version 1)
Quarter: 2018Q1

REPORT INFORMATION
  Report Type: Spontaneous
  Country: DE (occurrence: DE)
  Receive Date: 20180326
  Receipt Date: 20180326
  Transmission Date: 20180509
  Serious: Yes (Death, Hospitalization)
  Sender: FDA-Public Use
  Company Number: DE-JNJFOC-20180329571

PATIENT
  Age: 81 Year
  Sex: Male
  Weight: 67.6 kg

DRUGS (3)
  1. IBRUTINIB [Suspect]
     Active Substance: IBRUTINIB
     Indication: CHRONIC LYMPHOCYTIC LEUKAEMIA
     Dosage: ALSO REPORTED AS 140 MG 1 X 3
     Route: 048
     Dates: start: 20170630, end: 20180212
  2. COTRIMOXAZOLE [Concomitant]
     Active Substance: SULFAMETHOXAZOLE\TRIMETHOPRIM
     Dosage: 160/800 MG, 2X1
     Route: 065
  3. ACICLOVIR [Concomitant]
     Active Substance: ACYCLOVIR
     Route: 065

REACTIONS (3)
  - Pulmonary congestion [Fatal]
  - Cardiac failure [Fatal]
  - Chronic lymphocytic leukaemia [Fatal]

NARRATIVE: CASE EVENT DATE: 20180211
